FAERS Safety Report 7863369-1 (Version None)
Quarter: 2011Q4

REPORT INFORMATION
  Report Type: 
  Country: None (occurrence: None)
  Receive Date: 20111027
  Receipt Date: 20101202
  Transmission Date: 20120403
  Serious: No
  Sender: FDA-Public Use
  Company Number: US-AMGEN-USASP2010007352

PATIENT
  Age: 54 Year
  Sex: Female
  Weight: 77.098 kg

DRUGS (8)
  1. ENBREL [Suspect]
     Indication: PRODUCT USED FOR UNKNOWN INDICATION
     Dosage: 50 MG, QWK
     Route: 058
  2. POTASSIUM CHLORIDE [Concomitant]
     Dosage: 20 MEQ, UNK
  3. ALLEGRA [Concomitant]
     Dosage: 30 MG, UNK
     Route: 048
  4. XANAX [Concomitant]
     Dosage: 1 MG, UNK
     Route: 048
  5. HYDROCHLOROTHIAZIDE [Concomitant]
     Dosage: 25 MG, UNK
     Route: 048
  6. CENTRUM SILVER                     /01292501/ [Concomitant]
  7. ZANTAC                             /00550801/ [Concomitant]
     Dosage: 150 MG, UNK
     Route: 048
  8. COZAAR [Concomitant]
     Dosage: 50 MG, UNK
     Route: 048

REACTIONS (2)
  - UPPER RESPIRATORY TRACT INFECTION [None]
  - MOUTH ULCERATION [None]
